FAERS Safety Report 16741092 (Version 1)
Quarter: 2019Q3

REPORT INFORMATION
  Report Type: Spontaneous
  Country: FR (occurrence: FR)
  Receive Date: 20190826
  Receipt Date: 20190826
  Transmission Date: 20191005
  Serious: Yes (Other)
  Sender: FDA-Public Use
  Company Number: FR-GLAXOSMITHKLINE-FR2019GSK155047

PATIENT
  Age: 75 Year
  Sex: Male
  Weight: 120 kg

DRUGS (1)
  1. ACICLOVIR [Suspect]
     Active Substance: ACYCLOVIR
     Indication: HERPES ZOSTER
     Dosage: 3000 MG, QD
     Route: 042
     Dates: start: 20190305, end: 20190309

REACTIONS (3)
  - Nervous system disorder [Recovered/Resolved]
  - Myoclonus [Recovered/Resolved]
  - Antiviral drug level above therapeutic [Recovered/Resolved]

NARRATIVE: CASE EVENT DATE: 20190307
